FAERS Safety Report 12782126 (Version 1)
Quarter: 2016Q3

REPORT INFORMATION
  Report Type: Spontaneous
  Country: US (occurrence: US)
  Receive Date: 20160926
  Receipt Date: 20160926
  Transmission Date: 20161109
  Serious: Yes (Hospitalization)
  Sender: FDA-Public Use
  Company Number: None

PATIENT
  Age: 62 Year
  Sex: Male

DRUGS (29)
  1. POT CL MICRO [Concomitant]
  2. YSTATIN [Concomitant]
  3. ENTECAVIR. [Concomitant]
     Active Substance: ENTECAVIR
  4. BARACLUDE [Suspect]
     Active Substance: ENTECAVIR
     Indication: PRODUCT USED FOR UNKNOWN INDICATION
     Route: 048
     Dates: start: 20160825
  5. HYDROCO/APAP [Concomitant]
     Active Substance: ACETAMINOPHEN\HYDROCODONE
  6. ONE TOUCH [Concomitant]
  7. PREDNISONE. [Concomitant]
     Active Substance: PREDNISONE
  8. PROGRAF [Concomitant]
     Active Substance: TACROLIMUS\TACROLIMUS ANHYDROUS
  9. VALCYTE [Concomitant]
     Active Substance: VALGANCICLOVIR HYDROCHLORIDE
  10. SPIRONOLACT [Concomitant]
  11. ASPIRIN. [Concomitant]
     Active Substance: ASPIRIN
  12. CIPRODEX [Concomitant]
     Active Substance: CIPROFLOXACIN HYDROCHLORIDE\DEXAMETHASONE
  13. VIREAD [Concomitant]
     Active Substance: TENOFOVIR DISOPROXIL FUMARATE
  14. FREESTYLE [Concomitant]
  15. DOCQLACE [Concomitant]
     Active Substance: DOCUSATE SODIUM
  16. LEVOFLOXACIN. [Concomitant]
     Active Substance: LEVOFLOXACIN
  17. FUROSEMIDE. [Concomitant]
     Active Substance: FUROSEMIDE
  18. NOVOLOG [Concomitant]
     Active Substance: INSULIN ASPART
  19. HUMULIN NOS [Concomitant]
     Active Substance: INSULIN HUMAN
  20. SMZ-TMP [Concomitant]
     Active Substance: SULFAMETHOXAZOLE\TRIMETHOPRIM
  21. TRAMADOL. [Concomitant]
     Active Substance: TRAMADOL
  22. PANTOPRAZOLE [Concomitant]
     Active Substance: PANTOPRAZOLE SODIUM
  23. VALGANCICLOV [Concomitant]
  24. LIDOCAINE. [Concomitant]
     Active Substance: LIDOCAINE
  25. MAGOX [Concomitant]
  26. AMLODIPINE [Concomitant]
     Active Substance: AMLODIPINE BESYLATE
  27. LINZESS [Concomitant]
     Active Substance: LINACLOTIDE
  28. URSODIOL. [Concomitant]
     Active Substance: URSODIOL
  29. MYFORTIC [Concomitant]
     Active Substance: MYCOPHENOLATE SODIUM

REACTIONS (1)
  - Hospitalisation [None]

NARRATIVE: CASE EVENT DATE: 2016
